FAERS Safety Report 4867558-X (Version None)
Quarter: 2005Q4

REPORT INFORMATION
  Report Type: 
  Country: None (occurrence: None)
  Receive Date: 20051222
  Receipt Date: 20051212
  Transmission Date: 20060501
  Serious: Yes (Disabling, Other)
  Sender: FDA-Public Use
  Company Number: 2005168147

PATIENT
  Age: 29 Year
  Sex: Male
  Weight: 72.5755 kg

DRUGS (3)
  1. DILANTIN [Suspect]
     Indication: CONVULSION
     Dates: start: 19690101
  2. PHENYTOIN [Suspect]
     Indication: CONVULSION
     Dosage: (100 MG)
     Dates: start: 20050101
  3. CHOLESTEROL- AND TRIGLYCERIDE REDUCERS (CHOLESTEROL- AND TRIGLYCERIDE [Suspect]

REACTIONS (17)
  - ARTERIAL OCCLUSIVE DISEASE [None]
  - BLOOD CHOLESTEROL INCREASED [None]
  - BLOOD VISCOSITY INCREASED [None]
  - CARDIAC ARREST [None]
  - CARDIAC DISORDER [None]
  - CAROTID ARTERY OCCLUSION [None]
  - CONDITION AGGRAVATED [None]
  - CONVULSION [None]
  - CORONARY ARTERY OCCLUSION [None]
  - DIFFICULTY IN WALKING [None]
  - EYE INFECTION [None]
  - EYE OEDEMA [None]
  - INFECTION [None]
  - LOSS OF CONSCIOUSNESS [None]
  - OSTEOMYELITIS [None]
  - PROCEDURAL COMPLICATION [None]
  - VISUAL FIELD DEFECT [None]
